FAERS Safety Report 24232583 (Version 1)
Quarter: 2024Q3

REPORT INFORMATION
  Report Type: Report from Study
  Country: US (occurrence: US)
  Receive Date: 20240821
  Receipt Date: 20240821
  Transmission Date: 20241016
  Serious: Yes (Death, Hospitalization)
  Sender: PAREXEL
  Company Number: US-Stemline Therapeutics, Inc.-2024ST002975

PATIENT

DRUGS (2)
  1. ORSERDU [Suspect]
     Active Substance: ELACESTRANT
     Indication: Product used for unknown indication
     Dosage: 345 MG, DAILY
     Route: 048
     Dates: start: 20240307
  2. ORSERDU [Suspect]
     Active Substance: ELACESTRANT
     Dosage: 345 MG, DAILY
     Route: 048
     Dates: start: 20240725

REACTIONS (9)
  - Death [Fatal]
  - Respiration abnormal [Not Recovered/Not Resolved]
  - Pain [Not Recovered/Not Resolved]
  - Lymphoedema [Unknown]
  - Cough [Unknown]
  - Constipation [Unknown]
  - Vomiting [Unknown]
  - Nausea [Unknown]
  - Fatigue [Unknown]
